FAERS Safety Report 8928982 (Version 1)
Quarter: 2012Q4

REPORT INFORMATION
  Report Type: Report from Study
  Country: US (occurrence: US)
  Receive Date: 20121127
  Receipt Date: 20121127
  Transmission Date: 20130627
  Serious: Yes (Hospitalization)
  Sender: FDA-Public Use
  Company Number: US-009507513-1211USA008813

PATIENT
  Age: 73 Year
  Sex: Female

DRUGS (10)
  1. TEMODAR [Suspect]
     Indication: GLIOBLASTOMA
     Dosage: UNK
     Dates: start: 20090601
  2. TARCEVA [Suspect]
     Indication: GLIOBLASTOMA
     Dosage: 150 mg, UNK
     Dates: start: 20090527
  3. TARCEVA [Suspect]
     Dosage: 200 mg, UNK
     Dates: start: 20090610
  4. AVASTIN [Suspect]
     Indication: GLIOBLASTOMA
     Dosage: 10 mg/kg, q2w
     Route: 042
     Dates: start: 20090603
  5. TENORMIN [Concomitant]
     Dosage: UNK
     Dates: start: 1999
  6. LEVOXYL [Concomitant]
     Dosage: UNK
     Dates: start: 1999
  7. LISINOPRIL [Concomitant]
     Dosage: UNK
     Dates: start: 2007
  8. MINOCYCLINE [Concomitant]
     Dosage: UNK
     Dates: start: 20090611
  9. DECADRON TABLETS [Concomitant]
     Dosage: UNK
     Dates: start: 20090613
  10. ZOFRAN [Concomitant]
     Dosage: UNK
     Dates: start: 20090601, end: 20090614

REACTIONS (11)
  - Dehydration [Unknown]
  - Muscular weakness [Unknown]
  - Mobility decreased [Unknown]
  - Muscle spasms [Unknown]
  - Movement disorder [Unknown]
  - Hypernatraemia [Unknown]
  - Hypokalaemia [Unknown]
  - Electrolyte imbalance [Unknown]
  - Diarrhoea [Unknown]
  - Decreased appetite [Unknown]
  - Asthenia [Unknown]
